FAERS Safety Report 6986241-8 (Version None)
Quarter: 2010Q3

REPORT INFORMATION
  Report Type: 
  Country: None (occurrence: None)
  Receive Date: 20100915
  Receipt Date: 20090610
  Transmission Date: 20110219
  Serious: No
  Sender: FDA-Public Use
  Company Number: US-WYE-H09709909

PATIENT
  Sex: Female
  Weight: 79 kg

DRUGS (4)
  1. PRISTIQ [Suspect]
     Indication: HOT FLUSH
     Route: 048
     Dates: start: 20090609, end: 20090610
  2. NORVASC [Concomitant]
  3. SIMVASTATIN [Concomitant]
  4. AVAPRO [Concomitant]

REACTIONS (3)
  - DIARRHOEA [None]
  - HEADACHE [None]
  - INSOMNIA [None]
